FAERS Safety Report 7417729-3 (Version None)
Quarter: 2011Q2

REPORT INFORMATION
  Report Type: 
  Country: None (occurrence: None)
  Receive Date: 20110415
  Receipt Date: 20110412
  Transmission Date: 20111010
  Serious: Yes (Death)
  Sender: FDA-Public Use
  Company Number: PHHY2011FR29935

PATIENT
  Age: 59 Year
  Sex: Male
  Weight: 110 kg

DRUGS (8)
  1. LORMETAZEPAM [Concomitant]
  2. BROMAZEPAM [Concomitant]
  3. LEPONEX [Suspect]
     Indication: DYSKINESIA
     Dosage: 50 MG, DAILY
     Dates: start: 20110308
  4. ATARAX [Concomitant]
  5. DEPAKOTE [Concomitant]
     Dosage: 500 MG, BID
  6. LEPONEX [Suspect]
     Dosage: 75 MG, DAILY
     Dates: start: 20110322
  7. ABILIFY [Concomitant]
     Indication: BIPOLAR DISORDER
  8. PROPRANOLOL [Concomitant]
     Indication: TREMOR

REACTIONS (6)
  - MALAISE [None]
  - THIRST [None]
  - FATIGUE [None]
  - SEDATION [None]
  - DEATH [None]
  - HYPERHIDROSIS [None]
